FAERS Safety Report 25634932 (Version 3)
Quarter: 2025Q3

REPORT INFORMATION
  Report Type: Spontaneous
  Country: JP (occurrence: JP)
  Receive Date: 20250801
  Receipt Date: 20250909
  Transmission Date: 20251020
  Serious: Yes (Life-Threatening, Other)
  Sender: PFIZER
  Company Number: JP-PFIZER INC-PV202500092044

PATIENT
  Age: 43 Year
  Sex: Male

DRUGS (2)
  1. MEROPENEM [Suspect]
     Active Substance: MEROPENEM
  2. CEFMETAZOLE [Suspect]
     Active Substance: CEFMETAZOLE

REACTIONS (1)
  - Acquired factor V deficiency [Recovered/Resolved]
